FAERS Safety Report 7378012-8 (Version None)
Quarter: 2011Q1

REPORT INFORMATION
  Report Type: 
  Country: None (occurrence: None)
  Receive Date: 20110316
  Receipt Date: 20101207
  Transmission Date: 20110831
  Serious: Yes (Hospitalization, Other)
  Sender: FDA-Public Use
  Company Number: 20109774

PATIENT
  Sex: Female

DRUGS (1)
  1. LIORESAL [Suspect]
     Indication: MUSCLE SPASTICITY
     Dosage: DAILY, INTRATHECAL
     Route: 037

REACTIONS (5)
  - BACK PAIN [None]
  - DEVICE CONNECTION ISSUE [None]
  - SEROMA [None]
  - CONDITION AGGRAVATED [None]
  - MUSCLE SPASTICITY [None]
